FAERS Safety Report 20378810 (Version 1)
Quarter: 2022Q1

REPORT INFORMATION
  Report Type: Spontaneous
  Country: AT (occurrence: AT)
  Receive Date: 20220126
  Receipt Date: 20220126
  Transmission Date: 20220423
  Serious: Yes (Other)
  Sender: FDA-Public Use
  Company Number: AT-ROCHE-3001878

PATIENT
  Age: 77 Year
  Sex: Male

DRUGS (5)
  1. RITUXIMAB [Suspect]
     Active Substance: RITUXIMAB
     Indication: Diffuse large B-cell lymphoma
     Dosage: UNK
     Route: 065
  2. BENDAMUSTINE [Suspect]
     Active Substance: BENDAMUSTINE
     Indication: Diffuse large B-cell lymphoma
     Dosage: UNK
     Route: 065
  3. POLIVY [Suspect]
     Active Substance: POLATUZUMAB VEDOTIN-PIIQ
     Indication: Diffuse large B-cell lymphoma
     Dosage: UNK
     Route: 065
     Dates: start: 2020
  4. LENALIDOMIDE [Concomitant]
     Active Substance: LENALIDOMIDE
     Dosage: UNK
  5. TAFASITAMAB-CXIX [Concomitant]
     Active Substance: TAFASITAMAB-CXIX
     Dosage: UNK

REACTIONS (6)
  - Neutropenia [Unknown]
  - Lymphadenopathy [Unknown]
  - Pathological fracture [Unknown]
  - Musculoskeletal disorder [Unknown]
  - Diarrhoea [Unknown]
  - Infection [Unknown]
